FAERS Safety Report 6362374-4 (Version None)
Quarter: 2009Q3

REPORT INFORMATION
  Report Type: 
  Country: None (occurrence: None)
  Receive Date: 20090918
  Receipt Date: 20090714
  Transmission Date: 20100115
  Serious: No
  Sender: FDA-Public Use
  Company Number: US-ABBOTT-09P-163-0557431-00

PATIENT
  Sex: Female
  Weight: 58.566 kg

DRUGS (8)
  1. HUMIRA [Suspect]
     Indication: RHEUMATOID ARTHRITIS
     Route: 058
     Dates: start: 20090105
  2. HUMIRA [Suspect]
  3. HUMIRA [Suspect]
  4. CHOLESTYRAMINE [Concomitant]
     Indication: CONSTIPATION PROPHYLAXIS
     Dates: start: 20080901
  5. DYAZIDE [Concomitant]
     Indication: HYPERTENSION
  6. SOMA [Concomitant]
     Indication: RHEUMATOID ARTHRITIS
  7. VITAMINS [Concomitant]
     Indication: VITAMIN SUPPLEMENTATION
     Dosage: DAILY
  8. ATIVAN [Concomitant]
     Indication: INSOMNIA
     Dosage: DAILY

REACTIONS (5)
  - INFLAMMATION [None]
  - PAIN [None]
  - PAIN IN EXTREMITY [None]
  - RHEUMATOID ARTHRITIS [None]
  - URINARY TRACT INFECTION [None]
